FAERS Safety Report 4749021-X (Version None)
Quarter: 2005Q3

REPORT INFORMATION
  Report Type: 
  Country: None (occurrence: None)
  Receive Date: 20050817
  Receipt Date: 20050805
  Transmission Date: 20060218
  Serious: Yes (Death)
  Sender: FDA-Public Use
  Company Number: 2005107584

PATIENT
  Age: 31 Year
  Sex: Female

DRUGS (2)
  1. CLINDAMYCIN PHOSPHATE [Suspect]
     Indication: ILL-DEFINED DISORDER
  2. FAMOTIDINE [Suspect]
     Indication: ILL-DEFINED DISORDER

REACTIONS (1)
  - WHITE BLOOD CELL COUNT DECREASED [None]
